FAERS Safety Report 20062337 (Version 1)
Quarter: 2021Q4

REPORT INFORMATION
  Report Type: Spontaneous
  Country: BR (occurrence: BR)
  Receive Date: 20211112
  Receipt Date: 20211112
  Transmission Date: 20220303
  Serious: Yes (Hospitalization, Other)
  Sender: FDA-Public Use
  Company Number: None

PATIENT
  Age: 70 Year
  Sex: Female
  Weight: 117 kg

DRUGS (1)
  1. TEMODAL [Suspect]
     Active Substance: TEMOZOLOMIDE
     Indication: Brain neoplasm
     Dosage: DOSAGE FORMS OF 250 MG AND 20 MG, 290 MG FOR 5 DAYS , AFTER PAUSE OF 28 DAYS
     Route: 048
     Dates: start: 202101

REACTIONS (4)
  - Ovarian neoplasm [Not Recovered/Not Resolved]
  - Post procedural pulmonary embolism [Not Recovered/Not Resolved]
  - Adverse event [Not Recovered/Not Resolved]
  - Product dose omission issue [Unknown]

NARRATIVE: CASE EVENT DATE: 20210101
